FAERS Safety Report 6441332-5 (Version None)
Quarter: 2009Q4

REPORT INFORMATION
  Report Type: 
  Country: None (occurrence: None)
  Receive Date: 20091113
  Receipt Date: 20091113
  Transmission Date: 20100525
  Serious: Yes (Hospitalization, Disabling)
  Sender: FDA-Public Use
  Company Number: None

PATIENT
  Age: 19 Year
  Sex: Female

DRUGS (1)
  1. BACTRIM DS [Suspect]
     Indication: ANTIBIOTIC THERAPY
     Dosage: BID PO
     Route: 048
     Dates: start: 20091027, end: 20091106

REACTIONS (1)
  - STEVENS-JOHNSON SYNDROME [None]
